FAERS Safety Report 9797539 (Version 1)
Quarter: 2013Q4

REPORT INFORMATION
  Report Type: Spontaneous
  Country: FR (occurrence: None)
  Receive Date: 20131231
  Receipt Date: 20131231
  Transmission Date: 20140711
  Serious: Yes (Life-Threatening, Hospitalization)
  Sender: FDA-Public Use
  Company Number: 2013P1022147

PATIENT
  Age: 69 Year
  Sex: Male
  Weight: 72 kg

DRUGS (4)
  1. VANCOMYCIN [Suspect]
     Indication: SEPSIS
  2. RIFADINE [Suspect]
     Indication: SEPSIS
  3. GENTALLINE (GENTAMICIN) [Concomitant]
  4. BRISTOPEN (OXACILLIN) [Concomitant]

REACTIONS (10)
  - Drug reaction with eosinophilia and systemic symptoms [None]
  - Septic shock [None]
  - Multi-organ failure [None]
  - Dialysis [None]
  - Renal failure [None]
  - Thrombocytopenia [None]
  - Anaemia [None]
  - Condition aggravated [None]
  - Serum ferritin increased [None]
  - Encephalopathy [None]
